FAERS Safety Report 21587556 (Version 3)
Quarter: 2023Q2

REPORT INFORMATION
  Report Type: Report from Study
  Country: CA (occurrence: CA)
  Receive Date: 20221114
  Receipt Date: 20230525
  Transmission Date: 20230722
  Serious: Yes (Hospitalization, Other)
  Sender: FDA-Public Use
  Company Number: CA-002147023-NVSC2022CA247425

PATIENT
  Age: 66 Year
  Sex: Female
  Weight: 94 kg

DRUGS (6)
  1. METHOTREXATE [Suspect]
     Active Substance: METHOTREXATE
     Indication: Product used for unknown indication
     Dosage: 20 MG, QW
     Route: 058
     Dates: start: 20210211
  2. PREDNISONE [Concomitant]
     Active Substance: PREDNISONE
     Indication: Product used for unknown indication
     Dosage: UNK UNK, QD
     Route: 048
  3. ACTEMRA [Concomitant]
     Active Substance: TOCILIZUMAB
     Indication: Product used for unknown indication
     Dosage: UNK
     Route: 065
     Dates: start: 201907, end: 202202
  4. BILASTINE [Concomitant]
     Active Substance: BILASTINE
     Indication: Product used for unknown indication
     Dosage: UNK
     Route: 065
  5. KINERET [Concomitant]
     Active Substance: ANAKINRA
     Indication: Product used for unknown indication
     Dosage: UNK, BID ( STRENGTH: 100)
     Route: 065
  6. AMITRIPTYLINE [Concomitant]
     Active Substance: AMITRIPTYLINE
     Indication: Trigeminal neuralgia
     Dosage: UNK, PRN
     Route: 048
     Dates: start: 201801

REACTIONS (17)
  - Heart rate irregular [Unknown]
  - Dyspnoea [Unknown]
  - Still^s disease [Unknown]
  - Weight decreased [Unknown]
  - Condition aggravated [Not Recovered/Not Resolved]
  - Arthralgia [Unknown]
  - Rash [Unknown]
  - Eye pruritus [Unknown]
  - Fatigue [Unknown]
  - Abdominal discomfort [Unknown]
  - Pyrexia [Unknown]
  - Eye irritation [Unknown]
  - Hypertension [Unknown]
  - Quality of life decreased [Unknown]
  - Arthritis [Unknown]
  - Inflammatory marker increased [Unknown]
  - Drug ineffective [Unknown]

NARRATIVE: CASE EVENT DATE: 20220101
